FAERS Safety Report 5372562-1 (Version None)
Quarter: 2007Q2

REPORT INFORMATION
  Report Type: 
  Country: None (occurrence: None)
  Receive Date: 20070627
  Receipt Date: 20070615
  Transmission Date: 20071010
  Serious: Yes (Other)
  Sender: FDA-Public Use
  Company Number: TW-GILEAD-2007-0012460

PATIENT
  Age: 65 Year
  Sex: Male

DRUGS (1)
  1. HEPSERA [Suspect]
     Indication: HEPATITIS B
     Route: 048
     Dates: start: 20070329

REACTIONS (4)
  - INSOMNIA [None]
  - SCLERAL HAEMORRHAGE [None]
  - TENSION HEADACHE [None]
  - THROMBOCYTOPENIA [None]
